FAERS Safety Report 5024367-9 (Version None)
Quarter: 2006Q2

REPORT INFORMATION
  Report Type: 
  Country: None (occurrence: None)
  Receive Date: 20060609
  Receipt Date: 20060609
  Transmission Date: 20061013
  Serious: Yes (Other)
  Sender: FDA-Public Use
  Company Number: None

PATIENT
  Sex: Female

DRUGS (2)
  1. OMNISCAN [Suspect]
  2. OPTIMARK [Suspect]

REACTIONS (4)
  - AORTIC EMBOLUS [None]
  - NEPHROGENIC FIBROSING DERMOPATHY [None]
  - PERIPHERAL ISCHAEMIA [None]
  - SKIN DISCOLOURATION [None]
